FAERS Safety Report 12640786 (Version 2)
Quarter: 2016Q3

REPORT INFORMATION
  Report Type: Spontaneous
  Country: HR (occurrence: HR)
  Receive Date: 20160810
  Receipt Date: 20160815
  Transmission Date: 20161109
  Serious: Yes (Disabling)
  Sender: FDA-Public Use
  Company Number: HR-PFIZER INC-2016375412

PATIENT
  Age: 73 Year
  Sex: Female
  Weight: 75 kg

DRUGS (1)
  1. CYTOSAR [Suspect]
     Active Substance: CYTARABINE
     Indication: ACUTE MYELOID LEUKAEMIA
     Dosage: 1400 MG, CONTINUOUSLY FOR 7 DAYS
     Route: 042
     Dates: start: 20160505, end: 20160511

REACTIONS (3)
  - Cerebellar syndrome [Recovering/Resolving]
  - Dysarthria [Recovering/Resolving]
  - Ataxia [Recovering/Resolving]

NARRATIVE: CASE EVENT DATE: 20160515
